FAERS Safety Report 4308442-X (Version None)
Quarter: 2004Q1

REPORT INFORMATION
  Report Type: 
  Country: None (occurrence: None)
  Receive Date: 20040301
  Receipt Date: 20031008
  Transmission Date: 20041129
  Serious: Yes (Hospitalization)
  Sender: FDA-Public Use
  Company Number: PHNU2003DE03672

PATIENT
  Sex: Male

DRUGS (1)
  1. CO-DIOVAN [Suspect]
     Dosage: 160MG/DAY
     Dates: start: 20030201

REACTIONS (3)
  - BLOOD CREATINE PHOSPHOKINASE INCREASED [None]
  - CONDITION AGGRAVATED [None]
  - MYALGIA [None]
